FAERS Safety Report 20165371 (Version 3)
Quarter: 2022Q2

REPORT INFORMATION
  Report Type: Report from Study
  Country: US (occurrence: US)
  Receive Date: 20211209
  Receipt Date: 20220504
  Transmission Date: 20220721
  Serious: Yes (Other)
  Sender: FDA-Public Use
  Company Number: US-ALXN-A202111821

PATIENT
  Sex: Female

DRUGS (1)
  1. STRENSIQ [Suspect]
     Active Substance: ASFOTASE ALFA
     Indication: Hypophosphatasia
     Dosage: 1.25 ML, TIW
     Route: 058
     Dates: start: 20211024

REACTIONS (10)
  - Cellulitis [Unknown]
  - Limb discomfort [Unknown]
  - Headache [Unknown]
  - Injection site pain [Unknown]
  - Hypersensitivity [Unknown]
  - Injection site erythema [Unknown]
  - Injection site pruritus [Unknown]
  - Injection site bruising [Unknown]
  - Injection site urticaria [Unknown]
  - Injection site inflammation [Unknown]
